FAERS Safety Report 25257877 (Version 2)
Quarter: 2025Q4

REPORT INFORMATION
  Report Type: Report from Study
  Country: US (occurrence: US)
  Receive Date: 20250430
  Receipt Date: 20251106
  Transmission Date: 20260118
  Serious: Yes (Hospitalization, Other)
  Sender: ABBVIE
  Company Number: US-ABBVIE-6254230

PATIENT
  Age: 73 Year
  Sex: Female

DRUGS (3)
  1. SKYRIZI [Suspect]
     Active Substance: RISANKIZUMAB-RZAA
     Indication: Psoriasis
     Dosage: TIME INTERVAL: TOTAL: WEEK 0?STRENGTH:150MG/ML
     Route: 058
     Dates: start: 202503, end: 202503
  2. SKYRIZI [Suspect]
     Active Substance: RISANKIZUMAB-RZAA
     Indication: Psoriatic arthropathy
     Dosage: TIME INTERVAL: TOTAL: WEEK 4?STRENGTH:150MG/ML
     Route: 058
     Dates: start: 202504, end: 202504
  3. SKYRIZI [Suspect]
     Active Substance: RISANKIZUMAB-RZAA
     Dosage: STRENGTH:150MG/ML
     Route: 058
     Dates: start: 2025

REACTIONS (9)
  - Fall [Unknown]
  - Cerebral haemorrhage [Unknown]
  - Suture insertion [Not Recovered/Not Resolved]
  - Pruritus [Unknown]
  - Psoriasis [Recovering/Resolving]
  - Musculoskeletal stiffness [Unknown]
  - Pain [Not Recovered/Not Resolved]
  - Cerebrovascular accident [Unknown]
  - Back disorder [Unknown]

NARRATIVE: CASE EVENT DATE: 20250101
